FAERS Safety Report 9377369 (Version 2)
Quarter: 2013Q3

REPORT INFORMATION
  Report Type: Spontaneous
  Country: JP (occurrence: JP)
  Receive Date: 20130701
  Receipt Date: 20130801
  Transmission Date: 20140515
  Serious: Yes (Other)
  Sender: FDA-Public Use
  Company Number: JP-SANOFI-AVENTIS-2013SA065253

PATIENT
  Age: 70 Year
  Sex: Female

DRUGS (3)
  1. MYSLEE [Suspect]
     Indication: INSOMNIA
     Route: 048
  2. SIGMART [Concomitant]
  3. BAYASPIRIN [Concomitant]
     Dosage: ENTERIC TABLET

REACTIONS (2)
  - Myocardial infarction [Unknown]
  - Blood pressure increased [Unknown]
